FAERS Safety Report 14444500 (Version 1)
Quarter: 2018Q1

REPORT INFORMATION
  Report Type: Spontaneous
  Country: US (occurrence: US)
  Receive Date: 20180125
  Receipt Date: 20180125
  Transmission Date: 20180509
  Serious: Yes (Hospitalization, Disabling)
  Sender: FDA-Public Use
  Company Number: None

PATIENT
  Sex: Female
  Weight: 58.5 kg

DRUGS (18)
  1. SUMATRIPTAN. [Concomitant]
     Active Substance: SUMATRIPTAN
  2. GLUTEN FREE DIET [Concomitant]
  3. GLUTATHIONE [Concomitant]
     Active Substance: GLUTATHIONE
  4. CHLORELLA [Concomitant]
  5. ORGANIC DIET [Concomitant]
  6. IODINE. [Concomitant]
     Active Substance: IODINE
  7. VITAMIN D3 [Concomitant]
     Active Substance: CHOLECALCIFEROL
  8. VITAMIN C [Concomitant]
     Active Substance: ASCORBIC ACID
  9. VITAMIN E [Concomitant]
     Active Substance: .ALPHA.-TOCOPHEROL
  10. METHLYL FOLATE [Concomitant]
  11. MAGNESIUM [Concomitant]
     Active Substance: MAGNESIUM
  12. PROBIOTIC [Concomitant]
     Active Substance: PROBIOTICS NOS
  13. TOPIRAMATE. [Concomitant]
     Active Substance: TOPIRAMATE
  14. CIPROFLOXACIN HCL [Suspect]
     Active Substance: CIPROFLOXACIN HYDROCHLORIDE
     Indication: URINARY TRACT INFECTION
     Dosage: ?          QUANTITY:1 TABLET(S);?
     Route: 048
     Dates: start: 20180108, end: 20180110
  15. ESCITALOPRAM [Concomitant]
     Active Substance: ESCITALOPRAM OXALATE
  16. VALACYCLOVIR [Concomitant]
     Active Substance: VALACYCLOVIR HYDROCHLORIDE
  17. CRANBERRY. [Concomitant]
     Active Substance: CRANBERRY
  18. L-LYSINE [Concomitant]
     Active Substance: LYSINE

REACTIONS (14)
  - Loss of personal independence in daily activities [None]
  - Emotional distress [None]
  - Weight decreased [None]
  - Muscle spasms [None]
  - Mobility decreased [None]
  - Pain in extremity [None]
  - Arthralgia [None]
  - Dysstasia [None]
  - Nightmare [None]
  - Neck pain [None]
  - Musculoskeletal pain [None]
  - Muscle twitching [None]
  - Headache [None]
  - Gait disturbance [None]

NARRATIVE: CASE EVENT DATE: 20180108
